FAERS Safety Report 10288221 (Version 2)
Quarter: 2014Q1

REPORT INFORMATION
  Report Type: Spontaneous
  Country: US (occurrence: None)
  Receive Date: 20120817
  Receipt Date: 20130815
  Transmission Date: 20141002
  Serious: Yes (Other)
  Sender: FDA-Public Use
  Company Number: ADR-2012-00439

PATIENT
  Sex: Female

DRUGS (2)
  1. LIORESAL [Suspect]
     Indication: MUSCLE SPASTICITY
     Dosage: 300MCG/DAY
  2. LIORESAL [Suspect]
     Indication: CEREBROVASCULAR ACCIDENT
     Dosage: 300MCG/DAY

REACTIONS (5)
  - Muscle spasticity [None]
  - Drug withdrawal syndrome [None]
  - Rash [None]
  - Pruritus [None]
  - No therapeutic response [None]
